FAERS Safety Report 25219846 (Version 6)
Quarter: 2025Q2

REPORT INFORMATION
  Report Type: Spontaneous
  Country: US (occurrence: US)
  Receive Date: 20250421
  Receipt Date: 20250623
  Transmission Date: 20250717
  Serious: No
  Sender: PFIZER
  Company Number: US-PFIZER INC-202500044000

PATIENT
  Age: 3 Month
  Sex: Male
  Weight: 8.62 kg

DRUGS (1)
  1. GENOTROPIN [Suspect]
     Active Substance: SOMATROPIN
     Indication: Prader-Willi syndrome
     Dosage: 0.2 MILLIGRAMS 5 DAYS OF THE WEEK AND THEN HE TAKES 0.4 MILLIGRAMS THE OTHER 2 DAYS OF THE WEEK
     Dates: start: 202503

REACTIONS (3)
  - Drug dose omission by device [Unknown]
  - Device breakage [Unknown]
  - Device issue [Unknown]

NARRATIVE: CASE EVENT DATE: 20250401
